FAERS Safety Report 6785231-8 (Version None)
Quarter: 2010Q2

REPORT INFORMATION
  Report Type: 
  Country: None (occurrence: None)
  Receive Date: 20100622
  Receipt Date: 20100622
  Transmission Date: 20101027
  Serious: Yes (Death)
  Sender: FDA-Public Use
  Company Number: None

PATIENT
  Age: 68 Year
  Sex: Female
  Weight: 83.9154 kg

DRUGS (1)
  1. REVLIMID [Suspect]

REACTIONS (1)
  - LIVER INJURY [None]
